FAERS Safety Report 23737610 (Version 1)
Quarter: 2024Q2

REPORT INFORMATION
  Report Type: Spontaneous
  Country: CN (occurrence: CN)
  Receive Date: 20240412
  Receipt Date: 20240412
  Transmission Date: 20240715
  Serious: Yes (Other)
  Sender: FDA-Public Use
  Company Number: CN-009507513-2404CHN006227

PATIENT
  Age: 45 Year
  Sex: Female

DRUGS (2)
  1. JANUVIA [Suspect]
     Active Substance: SITAGLIPTIN PHOSPHATE
     Indication: Blood glucose increased
     Dosage: 100 MILLIGRAM, QD
     Route: 048
     Dates: start: 20240319, end: 20240321
  2. METFORMIN [Concomitant]
     Active Substance: METFORMIN HYDROCHLORIDE
     Dosage: UNK
     Dates: start: 20240319

REACTIONS (3)
  - Bronchiectasis [Unknown]
  - Lung opacity [Unknown]
  - Lymphadenitis [Unknown]

NARRATIVE: CASE EVENT DATE: 20240320
